FAERS Safety Report 6611469-6 (Version None)
Quarter: 2010Q1

REPORT INFORMATION
  Report Type: 
  Country: None (occurrence: None)
  Receive Date: 20100303
  Receipt Date: 20100222
  Transmission Date: 20100710
  Serious: Yes (Other)
  Sender: FDA-Public Use
  Company Number: US-ASTRAZENECA-2010SE05527

PATIENT
  Age: 18510 Day
  Sex: Female
  Weight: 72.6 kg

DRUGS (2)
  1. PRILOSEC OTC [Suspect]
     Indication: HERNIA
     Route: 048
     Dates: start: 20100201, end: 20100201
  2. SYNTHROID [Concomitant]
     Indication: THYROID DISORDER
     Route: 065

REACTIONS (8)
  - BLOOD PRESSURE INCREASED [None]
  - DYSPNOEA [None]
  - ERYTHEMA [None]
  - HYPERSENSITIVITY [None]
  - HYPOAESTHESIA [None]
  - NERVOUSNESS [None]
  - PAIN [None]
  - SWELLING [None]
